FAERS Safety Report 6756249-6 (Version None)
Quarter: 2010Q2

REPORT INFORMATION
  Report Type: 
  Country: None (occurrence: None)
  Receive Date: 20100603
  Receipt Date: 20100519
  Transmission Date: 20101027
  Serious: Yes (Death, Hospitalization)
  Sender: FDA-Public Use
  Company Number: 2010AL002922

PATIENT
  Age: 51 Year
  Sex: Female

DRUGS (4)
  1. INFANTS' APAP DROPS (ACETAMINOPHEN) (ALPHARMA) (INFANTS' APAP DROPS (A [Suspect]
     Indication: ABDOMINAL PAIN
     Dosage: 2 GM;QD;PO
     Route: 048
  2. ALENDRONIC ACID [Concomitant]
  3. CALCIUM CARBONATE [Concomitant]
  4. TEMAZEPAM [Concomitant]

REACTIONS (18)
  - ACUTE HEPATIC FAILURE [None]
  - ALCOHOL ABUSE [None]
  - ASTHENIA [None]
  - BLOOD GLUCOSE DECREASED [None]
  - BLOOD PRESSURE SYSTOLIC DECREASED [None]
  - BODY TEMPERATURE DECREASED [None]
  - CONFUSIONAL STATE [None]
  - DIARRHOEA [None]
  - DISEASE COMPLICATION [None]
  - DRUG ABUSE [None]
  - HEPATIC CIRRHOSIS [None]
  - HEPATORENAL SYNDROME [None]
  - METABOLIC ACIDOSIS [None]
  - MULTI-ORGAN FAILURE [None]
  - OXYGEN SATURATION DECREASED [None]
  - RESPIRATORY RATE INCREASED [None]
  - SINUS TACHYCARDIA [None]
  - SYSTEMIC INFLAMMATORY RESPONSE SYNDROME [None]
